FAERS Safety Report 24593653 (Version 1)
Quarter: 2024Q4

REPORT INFORMATION
  Report Type: Spontaneous
  Country: US (occurrence: None)
  Receive Date: 20241108
  Receipt Date: 20241108
  Transmission Date: 20250114
  Serious: Yes (Other)
  Sender: Public
  Company Number: None

PATIENT
  Age: 32 Year
  Sex: Female
  Weight: 72 kg

DRUGS (1)
  1. PYRIDOXINE\SEMAGLUTIDE [Suspect]
     Active Substance: PYRIDOXINE\SEMAGLUTIDE
     Indication: Weight decreased
     Dosage: OTHER FREQUENCY : ONCE A WEEK?
     Route: 058
     Dates: start: 20240729, end: 20241007

REACTIONS (4)
  - Constipation [None]
  - Therapy cessation [None]
  - Urinary tract infection [None]
  - Therapeutic product effect decreased [None]

NARRATIVE: CASE EVENT DATE: 20241007
